FAERS Safety Report 25654204 (Version 2)
Quarter: 2025Q3

REPORT INFORMATION
  Report Type: Spontaneous
  Country: US (occurrence: US)
  Receive Date: 20250807
  Receipt Date: 20250826
  Transmission Date: 20251021
  Serious: Yes (Hospitalization)
  Sender: MSN LABORATORIES PRIVATE LIMITED
  Company Number: US-MSNLABS-2025MSNLIT02034

PATIENT

DRUGS (2)
  1. AZACITIDINE [Suspect]
     Active Substance: AZACITIDINE
     Indication: Myelodysplastic syndrome
     Route: 065
  2. VENETOCLAX [Concomitant]
     Active Substance: VENETOCLAX
     Indication: Myelodysplastic syndrome
     Route: 065

REACTIONS (1)
  - Pleural effusion [Recovering/Resolving]
